FAERS Safety Report 5546043-6 (Version None)
Quarter: 2007Q4

REPORT INFORMATION
  Report Type: 
  Country: None (occurrence: None)
  Receive Date: 20071211
  Receipt Date: 20070831
  Transmission Date: 20080405
  Serious: No
  Sender: FDA-Public Use
  Company Number: US-BRISTOL-MYERS SQUIBB COMPANY-13894548

PATIENT
  Age: 57 Year
  Sex: Female
  Weight: 61 kg

DRUGS (4)
  1. EMSAM [Suspect]
     Indication: DEPRESSION
     Route: 062
     Dates: start: 20061101
  2. EMSAM [Suspect]
     Indication: ANXIETY
     Route: 062
     Dates: start: 20061101
  3. SYNTHROID [Concomitant]
  4. VIVELLE [Concomitant]

REACTIONS (1)
  - APPLICATION SITE REACTION [None]
